FAERS Safety Report 7244167-9 (Version None)
Quarter: 2011Q1

REPORT INFORMATION
  Report Type: 
  Country: None (occurrence: None)
  Receive Date: 20110119
  Receipt Date: 20110119
  Transmission Date: 20110831
  Serious: Yes (Disabling)
  Sender: FDA-Public Use
  Company Number: None

PATIENT
  Sex: Female
  Weight: 64.4108 kg

DRUGS (1)
  1. ANTISEPTIC ALCOHOL PREP PAD 70% ISOPROPYLALCOHOL TRIAD GROUP, INC [Suspect]
     Indication: INFUSION
     Dosage: 1 PAD EVERY 2 DAYS TOP EVERY 2 DAYS
     Route: 061

REACTIONS (6)
  - INFUSION SITE SCAR [None]
  - INFUSION SITE ERYTHEMA [None]
  - INFUSION SITE SWELLING [None]
  - INFUSION SITE PAIN [None]
  - INFUSION SITE PRURITUS [None]
  - INFUSION SITE ABSCESS [None]
